FAERS Safety Report 10666230 (Version 2)
Quarter: 2014Q4

REPORT INFORMATION
  Report Type: Spontaneous
  Country: GB (occurrence: GB)
  Receive Date: 20141219
  Receipt Date: 20141219
  Transmission Date: 20150529
  Serious: Yes (Death)
  Sender: FDA-Public Use
  Company Number: GB-BAUSCH-BL-2014-010065

PATIENT

DRUGS (4)
  1. FLUOROURACIL. [Suspect]
     Active Substance: FLUOROURACIL
     Route: 041
  2. OXALIPLATIN. [Suspect]
     Active Substance: OXALIPLATIN
     Indication: HEPATOCELLULAR CARCINOMA
     Route: 041
  3. FLUOROURACIL. [Suspect]
     Active Substance: FLUOROURACIL
     Indication: HEPATOCELLULAR CARCINOMA
     Route: 041
  4. LEUCOVORIN [Suspect]
     Active Substance: LEUCOVORIN
     Indication: HEPATOCELLULAR CARCINOMA

REACTIONS (1)
  - Neutropenic sepsis [Fatal]
